FAERS Safety Report 4819852-6 (Version None)
Quarter: 2005Q4

REPORT INFORMATION
  Report Type: 
  Country: None (occurrence: None)
  Receive Date: 20051102
  Receipt Date: 20051027
  Transmission Date: 20060501
  Serious: Yes (Death)
  Sender: FDA-Public Use
  Company Number: 05LEB0217

PATIENT
  Sex: Male

DRUGS (1)
  1. AGGRASTAT [Suspect]
     Indication: CHEST PAIN
     Dates: start: 20050711, end: 20050712

REACTIONS (1)
  - DEATH [None]
